FAERS Safety Report 4534742-4 (Version None)
Quarter: 2004Q4

REPORT INFORMATION
  Report Type: 
  Country: None (occurrence: None)
  Receive Date: 20041222
  Receipt Date: 20040106
  Transmission Date: 20050328
  Serious: No
  Sender: FDA-Public Use
  Company Number: US-BRISTOL-MYERS SQUIBB COMPANY-12471710

PATIENT
  Age: 83 Year
  Sex: Female
  Weight: 64 kg

DRUGS (5)
  1. PRAVACHOL [Suspect]
     Route: 048
  2. FOSAMAX [Concomitant]
  3. SPIRONOLACTONE [Concomitant]
  4. RITUXAN [Concomitant]
  5. VERAPAMIL [Concomitant]
     Indication: HYPERTENSION

REACTIONS (1)
  - ALOPECIA [None]
